FAERS Safety Report 6129657-4 (Version None)
Quarter: 2009Q1

REPORT INFORMATION
  Report Type: 
  Country: None (occurrence: None)
  Receive Date: 20090324
  Receipt Date: 20090313
  Transmission Date: 20090719
  Serious: Yes (Hospitalization)
  Sender: FDA-Public Use
  Company Number: TR-AMGEN-US339137

PATIENT
  Age: 21 Year
  Sex: Male

DRUGS (3)
  1. ENBREL [Suspect]
     Indication: JUVENILE ARTHRITIS
     Route: 058
  2. METHOTREXATE [Concomitant]
     Indication: JUVENILE ARTHRITIS
     Route: 048
  3. METHOTREXATE [Concomitant]
     Route: 048

REACTIONS (5)
  - ARTHRITIS [None]
  - CONDITION AGGRAVATED [None]
  - LYMPHADENOPATHY MEDIASTINAL [None]
  - PLEURISY [None]
  - THYMUS ENLARGEMENT [None]
